FAERS Safety Report 4804066-6 (Version None)
Quarter: 2005Q4

REPORT INFORMATION
  Report Type: 
  Country: None (occurrence: None)
  Receive Date: 20051014
  Receipt Date: 20051003
  Transmission Date: 20060501
  Serious: Yes (Hospitalization)
  Sender: FDA-Public Use
  Company Number: B0396233A

PATIENT
  Age: 41 Year
  Sex: Female

DRUGS (2)
  1. LAMICTAL [Suspect]
     Indication: DRUG USE FOR UNKNOWN INDICATION
     Dosage: 500 MG / PER DAY
  2. PHENOBARBITONE [Concomitant]

REACTIONS (9)
  - CONFUSIONAL STATE [None]
  - COORDINATION ABNORMAL [None]
  - DRUG TOXICITY [None]
  - HEADACHE [None]
  - INTENTIONAL SELF-INJURY [None]
  - OVERDOSE [None]
  - SKIN LACERATION [None]
  - STATUS EPILEPTICUS [None]
  - TONGUE INJURY [None]
